FAERS Safety Report 5030897-6 (Version None)
Quarter: 2006Q2

REPORT INFORMATION
  Report Type: 
  Country: None (occurrence: None)
  Receive Date: 20060621
  Receipt Date: 20060612
  Transmission Date: 20061013
  Serious: Yes (Other)
  Sender: FDA-Public Use
  Company Number: US-JNJFOC-20060503975

PATIENT
  Sex: Female

DRUGS (3)
  1. REMICADE [Suspect]
     Dosage: 33 TOTAL INFUSIONS
     Route: 042
  2. REMICADE [Suspect]
     Indication: RHEUMATOID ARTHRITIS
     Route: 042
  3. METHOTREXATE [Concomitant]

REACTIONS (1)
  - FOLLICLE CENTRE LYMPHOMA, FOLLICULAR GRADE I, II, III [None]
